FAERS Safety Report 14084768 (Version 1)
Quarter: 2017Q4

REPORT INFORMATION
  Report Type: Spontaneous
  Country: GB (occurrence: GB)
  Receive Date: 20171013
  Receipt Date: 20171013
  Transmission Date: 20180321
  Serious: Yes (Death, Other)
  Sender: FDA-Public Use
  Company Number: GB-ROCHE-2002507

PATIENT

DRUGS (6)
  1. METHOTREXATE. [Concomitant]
     Active Substance: METHOTREXATE
     Dosage: 15 PATIENTS
     Route: 058
  2. HYDROXYCHLOROQUINE [Concomitant]
     Active Substance: HYDROXYCHLOROQUINE
  3. ROACTEMRA [Suspect]
     Active Substance: TOCILIZUMAB
     Indication: RHEUMATOID ARTHRITIS
     Route: 058
  4. METHOTREXATE. [Concomitant]
     Active Substance: METHOTREXATE
     Dosage: 39 PATIENTS
     Route: 048
  5. ROACTEMRA [Suspect]
     Active Substance: TOCILIZUMAB
     Indication: RHEUMATOID ARTHRITIS
     Route: 042
  6. LEFLUNOMIDE. [Concomitant]
     Active Substance: LEFLUNOMIDE

REACTIONS (13)
  - Malaise [Unknown]
  - Platelet count decreased [Unknown]
  - Lower respiratory tract infection [Unknown]
  - Skin infection [Unknown]
  - Urinary tract infection [Unknown]
  - Diarrhoea [Unknown]
  - Rash [Unknown]
  - Neutropenia [Unknown]
  - Blood bilirubin increased [Unknown]
  - Death [Fatal]
  - Weight increased [Unknown]
  - Hyperlipidaemia [Unknown]
  - Infection [Unknown]
